FAERS Safety Report 8404335-7 (Version None)
Quarter: 2012Q2

REPORT INFORMATION
  Report Type: 
  Country: None (occurrence: None)
  Receive Date: 20120601
  Receipt Date: 20120523
  Transmission Date: 20120825
  Serious: Yes (Other)
  Sender: FDA-Public Use
  Company Number: JP-VERTEX PHARMACEUTICALS INC.-AE-2012-007783

PATIENT
  Age: 39 Year
  Sex: Male

DRUGS (11)
  1. PEGINTERFERON ALFA-2B [Concomitant]
     Route: 051
     Dates: start: 20120518
  2. AMOBAN [Concomitant]
     Route: 048
     Dates: start: 20120412
  3. PEGINTERFERON ALFA-2B [Concomitant]
     Route: 051
     Dates: start: 20120418, end: 20120418
  4. PEGINTERFERON ALFA-2B [Concomitant]
     Route: 051
     Dates: start: 20120427, end: 20120503
  5. RESTAMIN [Concomitant]
     Route: 061
     Dates: start: 20120509
  6. PEGINTERFERON ALFA-2B [Concomitant]
     Route: 051
     Dates: start: 20120411, end: 20120411
  7. TELAVIC (TELAPREVIR) [Suspect]
     Indication: HEPATITIS C
     Route: 048
     Dates: start: 20120411
  8. PEGINTERFERON ALFA-2B [Concomitant]
     Route: 051
     Dates: start: 20120511, end: 20120511
  9. ALLEGRA [Concomitant]
     Route: 048
     Dates: start: 20120509
  10. RIBAVIRIN [Concomitant]
     Route: 048
  11. LOXONIN [Concomitant]
     Route: 048
     Dates: start: 20120412

REACTIONS (1)
  - NEUTROPHIL COUNT DECREASED [None]
